FAERS Safety Report 8214507-2 (Version None)
Quarter: 2012Q1

REPORT INFORMATION
  Report Type: 
  Country: None (occurrence: None)
  Receive Date: 20120316
  Receipt Date: 20120316
  Transmission Date: 20120608
  Serious: Yes (Other)
  Sender: FDA-Public Use
  Company Number: None

PATIENT
  Age: 2 Month
  Sex: Male
  Weight: 6.3502 kg

DRUGS (1)
  1. PHENOBARBITAL 20MG/5ML ELIXIR [Suspect]
     Indication: EPILEPSY
     Dosage: 7.5 ML
     Route: 048
     Dates: start: 20120203, end: 20120217

REACTIONS (7)
  - SCAR [None]
  - DYSPNOEA [None]
  - PYREXIA [None]
  - VOMITING [None]
  - WHEEZING [None]
  - DIARRHOEA [None]
  - STEVENS-JOHNSON SYNDROME [None]
